FAERS Safety Report 9713324 (Version 1)
Quarter: 2013Q4

REPORT INFORMATION
  Report Type: Spontaneous
  Country: US (occurrence: None)
  Receive Date: 20131125
  Receipt Date: 20131125
  Transmission Date: 20140711
  Serious: Yes (Hospitalization)
  Sender: FDA-Public Use
  Company Number: None

PATIENT
  Age: 55 Year
  Sex: Male
  Weight: 77.6 kg

DRUGS (13)
  1. BYDUREON [Suspect]
     Indication: DIABETES MELLITUS
     Dosage: ONCE WEEKLY, SUBCUTANEOUS, 4-5 WEEKS
  2. LISINOPRIL 20 MG [Concomitant]
  3. METOPROLOL [Concomitant]
  4. GLYBURIDE [Concomitant]
  5. MEFFORMIN 100 MG [Concomitant]
  6. CRESTOR [Concomitant]
  7. ASPIRIN 325MG [Concomitant]
  8. FISH OIL [Concomitant]
  9. FLAXSEED [Concomitant]
  10. GARLIS [Concomitant]
  11. MULTIVITAMIN [Concomitant]
  12. VITAMIN C [Concomitant]
  13. OSTEOBIFLEX [Concomitant]

REACTIONS (2)
  - Abdominal distension [None]
  - Blood glucose increased [None]
